FAERS Safety Report 16677876 (Version 2)
Quarter: 2019Q3

REPORT INFORMATION
  Report Type: Spontaneous
  Country: US (occurrence: US)
  Receive Date: 20190807
  Receipt Date: 20190912
  Transmission Date: 20191004
  Serious: No
  Sender: FDA-Public Use
  Company Number: US-PFIZER INC-2019332983

PATIENT
  Age: 65 Year
  Sex: Female

DRUGS (3)
  1. TAPAZOLE [Suspect]
     Active Substance: METHIMAZOLE
     Dosage: 10 MG, 3X/DAY (3 TABLETS, DAILY)
     Dates: start: 2016
  2. TAPAZOLE [Suspect]
     Active Substance: METHIMAZOLE
     Dosage: 3 DF, DAILY
  3. TAPAZOLE [Suspect]
     Active Substance: METHIMAZOLE
     Indication: BLOOD THYROID STIMULATING HORMONE DECREASED
     Dosage: 2 DF, DAILY

REACTIONS (3)
  - Thyroid disorder [Not Recovered/Not Resolved]
  - Off label use [Not Recovered/Not Resolved]
  - Product use in unapproved indication [Not Recovered/Not Resolved]
